FAERS Safety Report 25746779 (Version 1)
Quarter: 2025Q3

REPORT INFORMATION
  Report Type: Spontaneous
  Country: DZ (occurrence: DZ)
  Receive Date: 20250901
  Receipt Date: 20250901
  Transmission Date: 20251021
  Serious: Yes (Other)
  Sender: PFIZER
  Company Number: DZ-PFIZER INC-PV202500105534

PATIENT

DRUGS (1)
  1. LORLATINIB [Suspect]
     Active Substance: LORLATINIB
     Dates: start: 202303

REACTIONS (4)
  - Hypercholesterolaemia [Unknown]
  - Hypocalcaemia [Unknown]
  - Headache [Unknown]
  - Oedema peripheral [Unknown]
